FAERS Safety Report 9062132 (Version 1)
Quarter: 2013Q1

REPORT INFORMATION
  Report Type: Spontaneous
  Country: US (occurrence: US)
  Receive Date: 20130128
  Receipt Date: 20130128
  Transmission Date: 20140127
  Serious: Yes (Other)
  Sender: FDA-Public Use
  Company Number: US-BAYER-2013-008158

PATIENT
  Sex: Female

DRUGS (3)
  1. MIRENA [Suspect]
     Dosage: 20 MCG/24HR, CONT
     Route: 015
  2. MIRENA [Suspect]
     Dosage: 20 MCG/24HR, CONT
     Route: 015
  3. REBIF [Suspect]
     Indication: MULTIPLE SCLEROSIS

REACTIONS (6)
  - Device issue [None]
  - Mass [None]
  - Device dislocation [None]
  - Pain [None]
  - Abdominal pain [None]
  - Amenorrhoea [None]
